FAERS Safety Report 9286881 (Version 1)
Quarter: 2013Q2

REPORT INFORMATION
  Report Type: Spontaneous
  Country: GB (occurrence: None)
  Receive Date: 20130508
  Receipt Date: 20130508
  Transmission Date: 20140414
  Serious: Yes (Hospitalization, Other)
  Sender: FDA-Public Use
  Company Number: GER/UKI/13/0029408

PATIENT
  Age: 84 Year
  Sex: Female

DRUGS (11)
  1. SERTRALINE [Suspect]
     Indication: ANXIETY
     Route: 048
     Dates: start: 20130412, end: 20130418
  2. TIOTROPIUM [Concomitant]
  3. BISOPROLOL [Concomitant]
  4. DIGOXIN [Concomitant]
  5. DOXAZOSIN [Concomitant]
  6. FYBOGEL [Concomitant]
  7. MOXONIDINE [Concomitant]
  8. PARACETAMOL [Concomitant]
  9. SALBUTAMOL (SALBUTAMOL SULFATE) [Concomitant]
  10. SERETIDE [Concomitant]
  11. WARFARIN [Concomitant]

REACTIONS (3)
  - Tremor [None]
  - Balance disorder [None]
  - Mobility decreased [None]
